FAERS Safety Report 7201316-6 (Version None)
Quarter: 2010Q4

REPORT INFORMATION
  Report Type: 
  Country: None (occurrence: None)
  Receive Date: 20101215
  Receipt Date: 20101202
  Transmission Date: 20110411
  Serious: Yes (Hospitalization)
  Sender: FDA-Public Use
  Company Number: 2010-4252

PATIENT
  Sex: Male

DRUGS (7)
  1. APO-GO PEN (APO-GO) (APOMORPHINE HYDROCHLORIDE) (AMOPORPHINE HYDROCHLO [Suspect]
     Indication: PRODUCT USED FOR UNKNOWN INDICATION
     Dosage: 10 MG/ML (AS REQUIRED), PARENTERAL
     Route: 051
  2. APO-GO AMPOULES (APO-GO) (APOMORPHINE HYDROCHLORIDE) (APOMORPHINE HYDR [Suspect]
     Indication: PRODUCT USED FOR UNKNOWN INDICATION
     Dosage: 5 NG/ML,PARENTERAL
     Route: 051
     Dates: start: 20100503, end: 20100507
  3. MOTILIUM [Suspect]
     Indication: PRODUCT USED FOR UNKNOWN INDICATION
     Dates: start: 20100401
  4. PREDNISOLONE [Concomitant]
  5. MADOPARK (ADOPAR /00349201/) [Concomitant]
  6. DUPHALAC [Concomitant]
  7. TRADOLAN RETARD DEPOTTABLES (TRAMADOL HYDROCHLORIDE) [Concomitant]

REACTIONS (1)
  - PNEUMONIA [None]
